FAERS Safety Report 5214538-0 (Version None)
Quarter: 2007Q1

REPORT INFORMATION
  Report Type: 
  Country: None (occurrence: None)
  Receive Date: 20070122
  Receipt Date: 20070117
  Transmission Date: 20070707
  Serious: Yes (Other)
  Sender: FDA-Public Use
  Company Number: GB-BRISTOL-MYERS SQUIBB COMPANY-13608955

PATIENT
  Age: 18 Year
  Sex: Female

DRUGS (1)
  1. ABILIFY [Suspect]

REACTIONS (2)
  - ABORTION [None]
  - PREGNANCY [None]
